FAERS Safety Report 6481345-0 (Version None)
Quarter: 2009Q4

REPORT INFORMATION
  Report Type: 
  Country: None (occurrence: None)
  Receive Date: 20091208
  Receipt Date: 20091130
  Transmission Date: 20100525
  Serious: Yes (Life-Threatening)
  Sender: FDA-Public Use
  Company Number: B0606362A

PATIENT
  Sex: Male

DRUGS (8)
  1. FLUTIDE [Suspect]
     Indication: DRUG USE FOR UNKNOWN INDICATION
     Dosage: 1200MCG PER DAY
     Route: 055
     Dates: start: 20080201, end: 20090901
  2. ZIAGEN [Suspect]
     Indication: DRUG USE FOR UNKNOWN INDICATION
     Route: 048
  3. RITONAVIR [Concomitant]
     Indication: DRUG USE FOR UNKNOWN INDICATION
     Route: 048
  4. EPIVIR [Concomitant]
     Route: 048
  5. RETROVIR [Concomitant]
     Route: 048
  6. EFAVIRENZ [Concomitant]
     Route: 048
  7. EMTRICITABINE [Concomitant]
     Route: 048
  8. RALTEGRAVIR POTASSIUM [Concomitant]
     Route: 048

REACTIONS (6)
  - ADRENAL INSUFFICIENCY [None]
  - BLOOD CORTISOL DECREASED [None]
  - GENERALISED OEDEMA [None]
  - MULTIPLE FRACTURES [None]
  - OEDEMA PERIPHERAL [None]
  - OSTEOPOROSIS [None]
